FAERS Safety Report 22717524 (Version 9)
Quarter: 2023Q4

REPORT INFORMATION
  Report Type: Report from Study
  Country: IT (occurrence: IT)
  Receive Date: 20230718
  Receipt Date: 20231123
  Transmission Date: 20240110
  Serious: Yes (Hospitalization, Other)
  Sender: FDA-Public Use
  Company Number: IT-TAKEDA-2023TUS057364

PATIENT
  Age: 69 Year
  Sex: Female

DRUGS (10)
  1. TEDUGLUTIDE [Suspect]
     Active Substance: TEDUGLUTIDE
     Indication: Short-bowel syndrome
     Dosage: 0.24 MILLILITER, QD
     Route: 058
     Dates: start: 20230606
  2. TEDUGLUTIDE [Suspect]
     Active Substance: TEDUGLUTIDE
     Indication: Short-bowel syndrome
     Dosage: 0.24 MILLILITER, QD
     Route: 058
     Dates: start: 20230606
  3. TEDUGLUTIDE [Suspect]
     Active Substance: TEDUGLUTIDE
     Indication: Short-bowel syndrome
     Dosage: 0.24 MILLILITER, QD
     Route: 058
     Dates: start: 20230606
  4. TEDUGLUTIDE [Suspect]
     Active Substance: TEDUGLUTIDE
     Indication: Short-bowel syndrome
     Dosage: 0.24 MILLILITER, QD
     Route: 058
     Dates: start: 20230606
  5. TEDUGLUTIDE [Suspect]
     Active Substance: TEDUGLUTIDE
     Dosage: 0.24 MILLILITER, QD
     Route: 058
  6. TEDUGLUTIDE [Suspect]
     Active Substance: TEDUGLUTIDE
     Dosage: 0.24 MILLILITER, QD
     Route: 058
  7. TEDUGLUTIDE [Suspect]
     Active Substance: TEDUGLUTIDE
     Dosage: 0.24 MILLILITER, QD
     Route: 058
  8. TEDUGLUTIDE [Suspect]
     Active Substance: TEDUGLUTIDE
     Dosage: 0.24 MILLILITER, QD
     Route: 058
  9. LEVOSULPIRIDE [Suspect]
     Active Substance: LEVOSULPIRIDE
     Indication: Product used for unknown indication
     Dosage: 25 MILLIGRAM
     Route: 065
  10. BETAHISTINE HYDROCHLORIDE [Suspect]
     Active Substance: BETAHISTINE HYDROCHLORIDE
     Indication: Product used for unknown indication
     Dosage: 8 MILLIGRAM
     Route: 065

REACTIONS (13)
  - Blood glucose increased [Not Recovered/Not Resolved]
  - Vascular device infection [Recovering/Resolving]
  - Diabetes mellitus [Unknown]
  - Pyrexia [Recovered/Resolved]
  - Chromaturia [Unknown]
  - Pain in extremity [Recovered/Resolved]
  - Weight decreased [Unknown]
  - Asthenia [Not Recovered/Not Resolved]
  - Hyponatraemia [Not Recovered/Not Resolved]
  - Nausea [Not Recovered/Not Resolved]
  - Dizziness [Not Recovered/Not Resolved]
  - Pancreatic cyst [Recovering/Resolving]
  - Cholelithiasis [Not Recovered/Not Resolved]

NARRATIVE: CASE EVENT DATE: 20230607
